FAERS Safety Report 6079380-X (Version None)
Quarter: 2009Q1

REPORT INFORMATION
  Report Type: 
  Country: None (occurrence: None)
  Receive Date: 20090216
  Receipt Date: 20090206
  Transmission Date: 20090719
  Serious: Yes (Hospitalization)
  Sender: FDA-Public Use
  Company Number: DK-TEVA-185093ISR

PATIENT
  Sex: Female

DRUGS (6)
  1. SIMVASTATIN [Suspect]
     Indication: HYPERCHOLESTEROLAEMIA
     Route: 048
     Dates: start: 20030901, end: 20081101
  2. ACETYLSALICYLIC ACID SRT [Concomitant]
     Route: 048
     Dates: start: 20020301
  3. AMLODIPINE [Concomitant]
     Route: 048
     Dates: start: 20060706
  4. TERBUTALINE SULFATE [Concomitant]
     Indication: ASTHMA
     Route: 055
  5. FLUTICASONE PROPIONATE W/SALMETEROL [Concomitant]
     Indication: ASTHMA
     Route: 055
  6. TIOTROPIUM BROMIDE [Concomitant]
     Indication: ASTHMA
     Route: 055

REACTIONS (3)
  - DEPRESSION [None]
  - HAEMATURIA [None]
  - STRANGURY [None]
